FAERS Safety Report 9691049 (Version 1)
Quarter: 2013Q4

REPORT INFORMATION
  Report Type: Spontaneous
  Country: US (occurrence: US)
  Receive Date: 20131115
  Receipt Date: 20131115
  Transmission Date: 20140711
  Serious: Yes (Other)
  Sender: FDA-Public Use
  Company Number: US-AMGEN-USASP2013079780

PATIENT
  Age: 60 Year
  Sex: Female
  Weight: 58.96 kg

DRUGS (4)
  1. ENBREL [Suspect]
     Indication: PRODUCT USED FOR UNKNOWN INDICATION
     Dosage: UNK
     Route: 065
  2. XANAX [Concomitant]
     Indication: ANXIETY
     Dosage: UNK
  3. KLONOPIN [Concomitant]
     Indication: SLEEP DISORDER
     Dosage: 1 MG, AS NECESSARY
  4. CHANTIX [Concomitant]
     Indication: SMOKING CESSATION THERAPY
     Dosage: 0.5 MG, BID
     Route: 048
     Dates: start: 20131101

REACTIONS (2)
  - Gastric ulcer [Unknown]
  - Drug ineffective [Unknown]
